FAERS Safety Report 8303723-7 (Version None)
Quarter: 2012Q1

REPORT INFORMATION
  Report Type: 
  Country: None (occurrence: None)
  Receive Date: 20120326
  Receipt Date: 20110920
  Transmission Date: 20120608
  Serious: Yes (Other)
  Sender: FDA-Public Use
  Company Number: PHEH2011US04749

PATIENT
  Age: 64 Year
  Sex: Male

DRUGS (4)
  1. LIPITOR [Concomitant]
  2. TASIGNA [Suspect]
     Dosage: 400 MG, BID, ORAL
     Route: 048
     Dates: start: 20110913
  3. VITAMIN D [Concomitant]
  4. METFORMIN HCL [Concomitant]

REACTIONS (2)
  - BLOOD GLUCOSE INCREASED [None]
  - HEADACHE [None]
